FAERS Safety Report 9323046 (Version 3)
Quarter: 2013Q4

REPORT INFORMATION
  Report Type: Spontaneous
  Country: FR (occurrence: FR)
  Receive Date: 20130603
  Receipt Date: 20131014
  Transmission Date: 20140711
  Serious: Yes (Hospitalization)
  Sender: FDA-Public Use
  Company Number: FR-ROCHE-1229854

PATIENT
  Age: 60 Year
  Sex: Female

DRUGS (2)
  1. APRANAX [Suspect]
     Indication: MUSCULOSKELETAL PAIN
     Route: 048
     Dates: start: 201304, end: 20130509
  2. BILASKA [Concomitant]
     Route: 048
     Dates: start: 20130429, end: 20130511

REACTIONS (3)
  - Lung disorder [Recovered/Resolved]
  - Eosinophilia [Recovered/Resolved]
  - Cholestasis [Recovered/Resolved]
